FAERS Safety Report 19191822 (Version 4)
Quarter: 2021Q3

REPORT INFORMATION
  Report Type: Spontaneous
  Country: US (occurrence: US)
  Receive Date: 20210429
  Receipt Date: 20210901
  Transmission Date: 20211014
  Serious: Yes (Life-Threatening, Hospitalization, Other)
  Sender: FDA-Public Use
  Company Number: US-AUROBINDO-AUR-APL-2021-016868

PATIENT
  Age: 66 Year
  Sex: Male

DRUGS (12)
  1. OXALIPLATIN. [Suspect]
     Active Substance: OXALIPLATIN
     Indication: OESOPHAGEAL CANCER METASTATIC
  2. 5?FU [Suspect]
     Active Substance: FLUOROURACIL
     Indication: OESOPHAGEAL CANCER METASTATIC
  3. OXALIPLATIN. [Suspect]
     Active Substance: OXALIPLATIN
     Indication: OESOPHAGEAL CARCINOMA
  4. LEUCOVORIN. [Suspect]
     Active Substance: LEUCOVORIN
     Indication: OESOPHAGEAL CARCINOMA
     Dosage: 900 MILLIGRAM
     Route: 065
  5. OXALIPLATIN. [Suspect]
     Active Substance: OXALIPLATIN
     Indication: ADENOCARCINOMA
     Dosage: 200 MILLIGRAM, CYCLICAL
     Route: 065
  6. OXALIPLATIN. [Suspect]
     Active Substance: OXALIPLATIN
     Indication: METASTASES TO BONE
  7. 5?FU [Suspect]
     Active Substance: FLUOROURACIL
     Indication: OESOPHAGEAL CARCINOMA
     Dosage: 5500 MILLIGRAM, CYCLICAL
     Route: 065
  8. FOLINIC ACID [Suspect]
     Active Substance: LEUCOVORIN
     Indication: METASTASES TO BONE
     Dosage: 900 MILLIGRAM, CYCLICAL
     Route: 065
  9. LEUCOVORIN. [Suspect]
     Active Substance: LEUCOVORIN
     Indication: ADENOCARCINOMA
  10. FOLINIC ACID [Suspect]
     Active Substance: LEUCOVORIN
     Indication: OESOPHAGEAL CANCER METASTATIC
  11. 5?FU [Suspect]
     Active Substance: FLUOROURACIL
     Indication: ADENOCARCINOMA
  12. 5?FU [Suspect]
     Active Substance: FLUOROURACIL
     Indication: METASTASES TO BONE

REACTIONS (6)
  - Dyspnoea [Recovered/Resolved]
  - Soft tissue swelling [Recovering/Resolving]
  - Swelling [Recovered/Resolved]
  - Necrosis [Unknown]
  - Laryngeal oedema [Recovering/Resolving]
  - Tumour necrosis [Recovering/Resolving]
